FAERS Safety Report 7458069-6 (Version None)
Quarter: 2011Q2

REPORT INFORMATION
  Report Type: 
  Country: None (occurrence: None)
  Receive Date: 20110504
  Receipt Date: 20110426
  Transmission Date: 20111010
  Serious: Yes (Death)
  Sender: FDA-Public Use
  Company Number: JP-GENZYME-THYM-1001634

PATIENT
  Sex: Female
  Weight: 61 kg

DRUGS (6)
  1. CARBAZOCHROME SODIUM SULFONATE [Concomitant]
     Indication: HAEMORRHAGE PROPHYLAXIS
     Dosage: UNK
     Dates: start: 20090911, end: 20091203
  2. THYMOGLOBULIN [Suspect]
     Indication: APLASTIC ANAEMIA
     Dosage: 200 MG, QD
     Route: 042
     Dates: start: 20091007, end: 20091011
  3. CYCLOSPORINE [Concomitant]
     Indication: APLASTIC ANAEMIA
     Dosage: UNK
     Dates: start: 20090829, end: 20091201
  4. RED BLOOD CELLS [Concomitant]
     Indication: APLASTIC ANAEMIA
     Dosage: UNK
     Dates: start: 20091012, end: 20091121
  5. TRANEXAMIC ACID [Concomitant]
     Indication: HAEMORRHAGE PROPHYLAXIS
     Dosage: UNK
     Dates: start: 20090911, end: 20091203
  6. PLATELETS [Concomitant]
     Indication: APLASTIC ANAEMIA
     Dosage: UNK
     Dates: start: 20091008, end: 20091202

REACTIONS (4)
  - INFECTION [None]
  - PYREXIA [None]
  - SEPSIS [None]
  - LIVER DISORDER [None]
